FAERS Safety Report 17884305 (Version 2)
Quarter: 2020Q4

REPORT INFORMATION
  Report Type: Spontaneous
  Country: CA (occurrence: CA)
  Receive Date: 20200611
  Receipt Date: 20201204
  Transmission Date: 20210113
  Serious: Yes (Other)
  Sender: FDA-Public Use
  Company Number: CA-PFIZER INC-2019055771

PATIENT
  Age: 28 Year
  Sex: Male

DRUGS (9)
  1. PREDNISONE. [Concomitant]
     Active Substance: PREDNISONE
     Dosage: 25 MG, 1X/DAY (TAPERING DOSES)
  2. PREDNISONE. [Concomitant]
     Active Substance: PREDNISONE
     Dosage: 20 MG, 1X/DAY
  3. XELJANZ [Suspect]
     Active Substance: TOFACITINIB CITRATE
     Dosage: 10 MG, 2X/DAY
     Route: 048
     Dates: start: 2020
  4. PREDNISONE. [Concomitant]
     Active Substance: PREDNISONE
     Dosage: 5 MG, 1X/DAY (OD) TAMPERING DOSES
     Route: 065
  5. CURCUMIN [Concomitant]
     Active Substance: CURCUMIN
     Dosage: UNK, 1X/DAY
     Route: 048
  6. XELJANZ [Suspect]
     Active Substance: TOFACITINIB CITRATE
     Indication: COLITIS ULCERATIVE
     Dosage: 10 MG, 2X/DAY
     Route: 048
     Dates: start: 20190128, end: 20191221
  7. XELJANZ [Suspect]
     Active Substance: TOFACITINIB CITRATE
     Dosage: 5 MG, 2X/DAY
     Route: 048
     Dates: start: 20191221, end: 2020
  8. PREDNISONE. [Concomitant]
     Active Substance: PREDNISONE
     Dosage: 30 MG, DAILY (OD)
  9. CALCIUM + VITAMIN D [CALCIUM;COLECALCIFEROL] [Concomitant]
     Active Substance: CALCIUM\CHOLECALCIFEROL
     Dosage: UNK, 1X/DAY (OD)
     Route: 048

REACTIONS (9)
  - Rectal haemorrhage [Unknown]
  - Nasal congestion [Unknown]
  - Headache [Unknown]
  - Illness [Unknown]
  - Extra dose administered [Unknown]
  - Condition aggravated [Not Recovered/Not Resolved]
  - Intentional product misuse [Unknown]
  - Chills [Unknown]
  - Body temperature increased [Unknown]

NARRATIVE: CASE EVENT DATE: 2019
